FAERS Safety Report 10028782 (Version 3)
Quarter: 2016Q3

REPORT INFORMATION
  Report Type: Spontaneous
  Country: JP (occurrence: JP)
  Receive Date: 20140321
  Receipt Date: 20160722
  Transmission Date: 20161108
  Serious: Yes (Death, Hospitalization, Other)
  Sender: FDA-Public Use
  Company Number: JP-BRISTOL-MYERS SQUIBB COMPANY-20232369

PATIENT
  Age: 47 Year
  Sex: Male

DRUGS (2)
  1. HYDREA [Suspect]
     Active Substance: HYDROXYUREA
     Indication: PRODUCT USED FOR UNKNOWN INDICATION
     Route: 065
  2. DASATINIB [Suspect]
     Active Substance: DASATINIB
     Indication: CHRONIC MYELOID LEUKAEMIA
     Dosage: 140 MG/DAY
     Route: 065
     Dates: start: 201009

REACTIONS (4)
  - Pulmonary haemorrhage [Fatal]
  - Blast crisis in myelogenous leukaemia [Unknown]
  - Melaena [Fatal]
  - Drug resistance [Unknown]

NARRATIVE: CASE EVENT DATE: 201101
